FAERS Safety Report 19028437 (Version 1)
Quarter: 2021Q1

REPORT INFORMATION
  Report Type: Spontaneous
  Country: FR (occurrence: FR)
  Receive Date: 20210318
  Receipt Date: 20210318
  Transmission Date: 20210420
  Serious: Yes (Hospitalization)
  Sender: FDA-Public Use
  Company Number: FR-ALSI-2021000073

PATIENT
  Age: 32 Year
  Sex: Female

DRUGS (1)
  1. NITROUS OXIDE. [Suspect]
     Active Substance: NITROUS OXIDE
     Indication: DRUG DEPENDENCE
     Route: 055

REACTIONS (3)
  - Drug abuse [Unknown]
  - Malaise [Recovered/Resolved]
  - Seizure [Recovered/Resolved]
